FAERS Safety Report 12582318 (Version 1)
Quarter: 2016Q3

REPORT INFORMATION
  Report Type: Spontaneous
  Country: US (occurrence: None)
  Receive Date: 20160721
  Receipt Date: 20160721
  Transmission Date: 20161109
  Serious: Yes (Disabling)
  Sender: FDA-Public Use
  Company Number: None

PATIENT
  Age: 47 Year
  Sex: Female
  Weight: 63.5 kg

DRUGS (1)
  1. OMEPRAZOLE, 40 MG KREMERS [Suspect]
     Active Substance: OMEPRAZOLE
     Indication: ULCER
     Route: 048

REACTIONS (16)
  - Abnormal dreams [None]
  - Myalgia [None]
  - Muscle spasms [None]
  - Diarrhoea [None]
  - Oropharyngeal pain [None]
  - Anxiety [None]
  - Palpitations [None]
  - Neck pain [None]
  - Gait disturbance [None]
  - Hypoaesthesia [None]
  - Insomnia [None]
  - Abdominal distension [None]
  - Blood pressure increased [None]
  - Arthralgia [None]
  - Headache [None]
  - Asthenia [None]

NARRATIVE: CASE EVENT DATE: 20160315
